FAERS Safety Report 10471285 (Version 4)
Quarter: 2015Q2

REPORT INFORMATION
  Report Type: Spontaneous
  Country: US (occurrence: US)
  Receive Date: 20140923
  Receipt Date: 20150520
  Transmission Date: 20150821
  Serious: Yes (Hospitalization, Other)
  Sender: FDA-Public Use
  Company Number: US-BAYER-2014-141126

PATIENT
  Age: 75 Year
  Sex: Female

DRUGS (14)
  1. ALBUTEROL. [Concomitant]
     Active Substance: ALBUTEROL
  2. GEMFIBROZIL. [Concomitant]
     Active Substance: GEMFIBROZIL
  3. FUROSEMIDE. [Concomitant]
     Active Substance: FUROSEMIDE
  4. ADEMPAS [Suspect]
     Active Substance: RIOCIGUAT
     Indication: PULMONARY HYPERTENSION
     Dosage: 1 MG, QD
     Dates: start: 20140724, end: 201501
  5. AMANTADINE [Concomitant]
     Active Substance: AMANTADINE
  6. KEPPRA [Concomitant]
     Active Substance: LEVETIRACETAM
  7. IRON [Concomitant]
     Active Substance: IRON
  8. HYDROCODONE BITARTRATE AND ACETAMINOPHEN [Concomitant]
     Active Substance: ACETAMINOPHEN\HYDROCODONE BITARTRATE
  9. OMEPRAZOLE. [Concomitant]
     Active Substance: OMEPRAZOLE
  10. VITAMIN D [Concomitant]
     Active Substance: CHOLECALCIFEROL
  11. ALLOPURINOL. [Concomitant]
     Active Substance: ALLOPURINOL
  12. CARVEDILOL. [Concomitant]
     Active Substance: CARVEDILOL
  13. MINOXIDIL. [Concomitant]
     Active Substance: MINOXIDIL
  14. METOLAZONE. [Concomitant]
     Active Substance: METOLAZONE

REACTIONS (10)
  - Underdose [None]
  - Subdural haematoma [None]
  - Head injury [None]
  - Subdural haematoma evacuation [None]
  - Gait disturbance [Recovering/Resolving]
  - Fall [None]
  - Hospitalisation [None]
  - Memory impairment [None]
  - Tremor [Recovering/Resolving]
  - Dyspnoea [Recovering/Resolving]

NARRATIVE: CASE EVENT DATE: 201409
